FAERS Safety Report 24721516 (Version 1)
Quarter: 2024Q4

REPORT INFORMATION
  Report Type: Spontaneous
  Country: US (occurrence: None)
  Receive Date: 20241210
  Receipt Date: 20241210
  Transmission Date: 20250115
  Serious: Yes (unspecified)
  Sender: Public
  Company Number: None

PATIENT
  Age: 60 Year
  Sex: Female
  Weight: 66.6 kg

DRUGS (5)
  1. CEQUA [Suspect]
     Active Substance: CYCLOSPORINE
     Indication: Product used for unknown indication
     Dates: start: 20241028, end: 20241122
  2. CUVITRU [Concomitant]
     Active Substance: HUMAN IMMUNOGLOBULIN G
  3. Meibo eye drops [Concomitant]
  4. Carter^s fish oil [Concomitant]
  5. Vit D K3 [Concomitant]

REACTIONS (2)
  - Tooth infection [None]
  - Pulpless tooth [None]

NARRATIVE: CASE EVENT DATE: 20241120
